FAERS Safety Report 7448235-8 (Version None)
Quarter: 2011Q2

REPORT INFORMATION
  Report Type: 
  Country: None (occurrence: None)
  Receive Date: 20110429
  Receipt Date: 20100614
  Transmission Date: 20111010
  Serious: Yes (Other)
  Sender: FDA-Public Use
  Company Number: US-ASTRAZENECA-2010SE17244

PATIENT
  Age: 72 Year
  Sex: Male
  Weight: 104.3 kg

DRUGS (14)
  1. NEXIUM [Suspect]
     Route: 048
     Dates: start: 20100301
  2. ISOSORBIDE DINITRATE [Concomitant]
  3. CARDURA [Concomitant]
  4. POTASSIUM [Concomitant]
  5. TOPROL-XL [Concomitant]
  6. NEXIUM [Suspect]
     Indication: DYSPEPSIA
     Route: 048
  7. LEVEMIR [Concomitant]
     Dosage: HS
  8. AMLODIPINE [Concomitant]
  9. ASPIRIN [Concomitant]
  10. PROVASTIN [Concomitant]
  11. ALTASE [Concomitant]
  12. LASIX [Concomitant]
  13. AMARYL [Concomitant]
  14. MULTI-VITAMIN [Concomitant]

REACTIONS (3)
  - FAECES DISCOLOURED [None]
  - ABDOMINAL PAIN UPPER [None]
  - GASTRIC HAEMORRHAGE [None]
